FAERS Safety Report 5796373-8 (Version None)
Quarter: 2008Q2

REPORT INFORMATION
  Report Type: 
  Country: None (occurrence: None)
  Receive Date: 20080630
  Receipt Date: 20080630
  Transmission Date: 20081010
  Serious: Yes (Other)
  Sender: FDA-Public Use
  Company Number: None

PATIENT
  Age: 67 Year
  Sex: Female
  Weight: 43.5453 kg

DRUGS (1)
  1. DIGITEK 0.125MG BERTEK [Suspect]
     Indication: ARRHYTHMIA
     Dosage: 1 TABLET ONCE A DATE
     Dates: start: 20080407, end: 20080430

REACTIONS (9)
  - ANOREXIA [None]
  - ASTHENIA [None]
  - INFLUENZA [None]
  - MALAISE [None]
  - ORAL DISCOMFORT [None]
  - ORAL INTAKE REDUCED [None]
  - PHARMACEUTICAL PRODUCT COMPLAINT [None]
  - TONGUE DISCOLOURATION [None]
  - WEIGHT DECREASED [None]
